FAERS Safety Report 10329051 (Version 27)
Quarter: 2019Q1

REPORT INFORMATION
  Report Type: Report from Study
  Country: CA (occurrence: CA)
  Receive Date: 20140721
  Receipt Date: 20190322
  Transmission Date: 20190417
  Serious: Yes (Hospitalization, Other)
  Sender: FDA-Public Use
  Company Number: PHHY2014CA087527

PATIENT
  Age: 64 Year
  Sex: Male

DRUGS (7)
  1. SANDOSTATIN LAR DEPOT [Suspect]
     Active Substance: OCTREOTIDE ACETATE
     Dosage: 30 MG, Q3W
     Route: 030
  2. SANDOSTATIN [Suspect]
     Active Substance: OCTREOTIDE ACETATE
     Indication: NEUROENDOCRINE CARCINOMA METASTATIC
     Dosage: 100 UG, ONCE/SINGLE
     Route: 058
     Dates: start: 20131128, end: 20131128
  3. SANDOSTATIN LAR DEPOT [Suspect]
     Active Substance: OCTREOTIDE ACETATE
     Dosage: 40 MG, QMO (EVERY 28 DAYS)
     Route: 030
  4. SANDOSTATIN LAR DEPOT [Suspect]
     Active Substance: OCTREOTIDE ACETATE
     Dosage: 60 MG, (EVERY 3 WEEKS)
     Route: 030
  5. INSULIN [Concomitant]
     Active Substance: INSULIN NOS
     Indication: PRODUCT USED FOR UNKNOWN INDICATION
     Dosage: UNK UNK, QHS
     Route: 065
     Dates: start: 2017
  6. SANDOSTATIN LAR DEPOT [Suspect]
     Active Substance: OCTREOTIDE ACETATE
     Indication: NEUROENDOCRINE CARCINOMA METASTATIC
     Dosage: 30 MG, QMO (EVERY 4 WEEKS)
     Route: 030
     Dates: start: 20131203
  7. SANDOSTATIN LAR DEPOT [Suspect]
     Active Substance: OCTREOTIDE ACETATE
     Dosage: 60 MG, QMO (EVERY 4 WEEKS)
     Route: 030

REACTIONS (29)
  - Insomnia [Unknown]
  - Rectal prolapse [Unknown]
  - Decreased appetite [Unknown]
  - Blood pressure increased [Unknown]
  - Fall [Recovering/Resolving]
  - Injury [Recovering/Resolving]
  - Dehydration [Unknown]
  - Nausea [Unknown]
  - Blood pressure immeasurable [Unknown]
  - Facial bones fracture [Recovering/Resolving]
  - Rash [Unknown]
  - Intra-abdominal fluid collection [Unknown]
  - Abdominal discomfort [Unknown]
  - Fatigue [Unknown]
  - Hypotension [Unknown]
  - Weight decreased [Unknown]
  - Peripheral swelling [Unknown]
  - General physical health deterioration [Unknown]
  - Vomiting [Unknown]
  - Inappropriate schedule of product administration [Unknown]
  - Ascites [Recovered/Resolved]
  - Dizziness postural [Unknown]
  - Thirst decreased [Unknown]
  - Pain [Unknown]
  - Malignant neoplasm progression [Unknown]
  - Contusion [Recovering/Resolving]
  - Joint swelling [Unknown]
  - Asthenia [Unknown]
  - Diarrhoea [Recovered/Resolved]

NARRATIVE: CASE EVENT DATE: 2015
